FAERS Safety Report 19734611 (Version 3)
Quarter: 2022Q2

REPORT INFORMATION
  Report Type: Other
  Country: JP (occurrence: None)
  Receive Date: 20210824
  Receipt Date: 20220405
  Transmission Date: 20220720
  Serious: Yes (Death, Hospitalization)
  Sender: FDA-Public Use
  Company Number: JP-MLMSERVICE-20210811-3045156-1

PATIENT
  Age: 79 Year
  Sex: Male

DRUGS (3)
  1. XELODA [Suspect]
     Active Substance: CAPECITABINE
     Indication: Colon cancer stage IV
     Dosage: DAY 1-14, 800 MGX2/DAY , EVERY 3 WEEKS
     Route: 048
  2. OXALIPLATIN [Suspect]
     Active Substance: OXALIPLATIN
     Indication: Colon cancer stage IV
     Dosage: DAY 1, 200 MG/DAY, EVERY 3 WEEKS
     Route: 041
  3. OXALIPLATIN [Suspect]
     Active Substance: OXALIPLATIN
     Route: 041

REACTIONS (2)
  - Acute myeloid leukaemia [Fatal]
  - Hypoaesthesia [Unknown]
